FAERS Safety Report 5102094-7 (Version None)
Quarter: 2006Q3

REPORT INFORMATION
  Report Type: 
  Country: None (occurrence: None)
  Receive Date: 20060912
  Receipt Date: 20060831
  Transmission Date: 20061208
  Serious: Yes (Other)
  Sender: FDA-Public Use
  Company Number: PHBS2006PT13271

PATIENT
  Age: 36 Year
  Sex: Female

DRUGS (2)
  1. VOLTAREN [Suspect]
     Dosage: 75 MG/DAY
     Route: 030
  2. THIOCOLCHICOSIDE [Suspect]
     Dosage: 4 MG/DAY
     Route: 030

REACTIONS (2)
  - EYE OEDEMA [None]
  - FACE OEDEMA [None]
